FAERS Safety Report 9259209 (Version 1)
Quarter: 2013Q2

REPORT INFORMATION
  Report Type: Report from Study
  Country: US (occurrence: US)
  Receive Date: 20130426
  Receipt Date: 20130426
  Transmission Date: 20140414
  Serious: Yes (Hospitalization)
  Sender: FDA-Public Use
  Company Number: US-US-EMD SERONO, INC.-7207099

PATIENT
  Age: 54 Year
  Sex: Male

DRUGS (1)
  1. REBIF [Suspect]
     Indication: MULTIPLE SCLEROSIS
     Route: 058
     Dates: start: 20110313

REACTIONS (6)
  - Gangrene [Recovered/Resolved]
  - Staphylococcal infection [Recovered/Resolved]
  - Limb crushing injury [Recovered/Resolved]
  - Nausea [Unknown]
  - Injection site bruising [Unknown]
  - Injection site pain [Unknown]
